FAERS Safety Report 15579132 (Version 1)
Quarter: 2018Q4

REPORT INFORMATION
  Report Type: Spontaneous
  Country: US (occurrence: US)
  Receive Date: 20181102
  Receipt Date: 20181102
  Transmission Date: 20190205
  Serious: No
  Sender: FDA-Public Use
  Company Number: US-TEVA-2018-US-970711

PATIENT
  Sex: Female

DRUGS (1)
  1. BACLOFEN. [Suspect]
     Active Substance: BACLOFEN
     Route: 065
     Dates: start: 20180820

REACTIONS (3)
  - Chest discomfort [Unknown]
  - Wheezing [Unknown]
  - Dyspnoea [Unknown]
